FAERS Safety Report 5407326-3 (Version None)
Quarter: 2007Q3

REPORT INFORMATION
  Report Type: 
  Country: None (occurrence: None)
  Receive Date: 20070807
  Receipt Date: 20070727
  Transmission Date: 20080115
  Serious: Yes (Other)
  Sender: FDA-Public Use
  Company Number: US-ROCHE-508959

PATIENT
  Age: 60 Year
  Sex: Female
  Weight: 52.2 kg

DRUGS (3)
  1. BONIVA [Suspect]
     Indication: OSTEOPOROSIS
     Route: 048
     Dates: start: 20050101
  2. UNSPECIFIED MEDICATION [Concomitant]
     Dosage: REPORTED AS CHOLESTEROL MEDICATION
  3. UNSPECIFIED MEDICATION [Concomitant]
     Dosage: REPORTED AS THYROID MEDICATION

REACTIONS (3)
  - GINGIVAL INFECTION [None]
  - LYMPHADENOPATHY [None]
  - PAIN IN JAW [None]
